FAERS Safety Report 15466127 (Version 2)
Quarter: 2018Q4

REPORT INFORMATION
  Report Type: Report from Study
  Country: US (occurrence: US)
  Receive Date: 20181004
  Receipt Date: 20181206
  Transmission Date: 20190204
  Serious: Yes (Other)
  Sender: FDA-Public Use
  Company Number: PHEH2018US040510

PATIENT
  Sex: Female

DRUGS (1)
  1. ENTRESTO [Suspect]
     Active Substance: SACUBITRIL\VALSARTAN
     Indication: CARDIAC FAILURE
     Route: 048

REACTIONS (6)
  - Fatigue [Unknown]
  - Decreased activity [Unknown]
  - Peripheral swelling [Recovering/Resolving]
  - Viral infection [Unknown]
  - Dyspnoea [Unknown]
  - Respiratory tract infection [Unknown]
